FAERS Safety Report 17795005 (Version 2)
Quarter: 2020Q2

REPORT INFORMATION
  Report Type: Other
  Country: US (occurrence: US)
  Receive Date: 20200515
  Receipt Date: 20200528
  Transmission Date: 20200714
  Serious: Yes (Hospitalization, Other)
  Sender: FDA-Public Use
  Company Number: US-AMAG PHARMACEUTICALS, INC.-AMAG202001729

PATIENT
  Age: 27 Year
  Sex: Female

DRUGS (6)
  1. BONJESTA [Concomitant]
     Active Substance: DOXYLAMINE SUCCINATE\PYRIDOXINE HYDROCHLORIDE
     Indication: NAUSEA
     Route: 048
     Dates: start: 20191025, end: 20200218
  2. BONJESTA [Concomitant]
     Active Substance: DOXYLAMINE SUCCINATE\PYRIDOXINE HYDROCHLORIDE
     Indication: VOMITING
  3. MAKENA [Suspect]
     Active Substance: HYDROXYPROGESTERONE CAPROATE
     Indication: PREMATURE DELIVERY
     Dosage: 250 MG/ML, WEEKLY
     Route: 058
     Dates: start: 20200129, end: 20200430
  4. PRENATAL VITAMINS [Concomitant]
     Active Substance: VITAMINS
     Indication: PREGNANCY
     Route: 048
     Dates: start: 20190828
  5. UNISOM SLEEPTABS [Concomitant]
     Active Substance: DOXYLAMINE SUCCINATE
     Indication: VOMITING
  6. VITAMIN B6 [Concomitant]
     Active Substance: PYRIDOXINE HYDROCHLORIDE
     Indication: VOMITING

REACTIONS (10)
  - Premature delivery [Recovered/Resolved]
  - Influenza [Unknown]
  - Inappropriate schedule of product administration [Unknown]
  - Back pain [Unknown]
  - Anaemia [Unknown]
  - Abdominal pain [Unknown]
  - Uterine contractions during pregnancy [Unknown]
  - Uterine irritability [Unknown]
  - Streptococcus test positive [Unknown]
  - Upper respiratory tract infection [Unknown]

NARRATIVE: CASE EVENT DATE: 20200129
